FAERS Safety Report 6501828-4 (Version None)
Quarter: 2009Q4

REPORT INFORMATION
  Report Type: 
  Country: None (occurrence: None)
  Receive Date: 20091216
  Receipt Date: 20091208
  Transmission Date: 20100525
  Serious: Yes (Other)
  Sender: FDA-Public Use
  Company Number: CA-PFIZER INC-2009293717

PATIENT
  Age: 63 Year
  Sex: Female

DRUGS (3)
  1. DETROL LA [Suspect]
     Dosage: 4 MG, ONLY ONE DOSE
     Dates: start: 20090906, end: 20090906
  2. DETROL LA [Suspect]
     Dosage: 4 MG, ONE DOSE
     Dates: start: 20091104, end: 20091104
  3. ATIVAN [Concomitant]
     Dosage: UNK

REACTIONS (9)
  - CONSTIPATION [None]
  - DEHYDRATION [None]
  - DRY MOUTH [None]
  - DYSPHONIA [None]
  - DYSURIA [None]
  - HEADACHE [None]
  - NASAL DRYNESS [None]
  - POLLAKIURIA [None]
  - VITREOUS DETACHMENT [None]
